FAERS Safety Report 5406647-8 (Version None)
Quarter: 2007Q3

REPORT INFORMATION
  Report Type: 
  Country: None (occurrence: None)
  Receive Date: 20070806
  Receipt Date: 20070725
  Transmission Date: 20080115
  Serious: Yes (Other)
  Sender: FDA-Public Use
  Company Number: US-PFIZER INC-2007062807

PATIENT
  Sex: Female
  Weight: 62.6 kg

DRUGS (7)
  1. LIPITOR [Suspect]
     Indication: BLOOD CHOLESTEROL INCREASED
  2. TYLENOL (CAPLET) [Concomitant]
  3. MULTIVITAMIN [Concomitant]
  4. TENORMIN [Concomitant]
  5. LISINOPRIL [Concomitant]
  6. HYDROCHLOROTHIAZIDE [Concomitant]
  7. NORVASC [Concomitant]

REACTIONS (4)
  - ASTHENIA [None]
  - DIARRHOEA [None]
  - FRACTURE [None]
  - HAEMATOCRIT DECREASED [None]
